FAERS Safety Report 12643295 (Version 1)
Quarter: 2016Q3

REPORT INFORMATION
  Report Type: Spontaneous
  Country: US (occurrence: US)
  Receive Date: 20160811
  Receipt Date: 20160811
  Transmission Date: 20161109
  Serious: Yes (Hospitalization)
  Sender: FDA-Public Use
  Company Number: US-ACCORD-043049

PATIENT
  Age: 64 Year
  Sex: Female

DRUGS (2)
  1. ACETYLSALICYLIC ACID [Suspect]
     Active Substance: ASPIRIN
     Indication: TRANSIENT ISCHAEMIC ATTACK
  2. CLOPIDOGREL [Suspect]
     Active Substance: CLOPIDOGREL BISULFATE
     Indication: TRANSIENT ISCHAEMIC ATTACK

REACTIONS (2)
  - Haematoma [Recovered/Resolved]
  - Synovial cyst [Recovered/Resolved]
